FAERS Safety Report 13932015 (Version 7)
Quarter: 2021Q2

REPORT INFORMATION
  Report Type: Spontaneous
  Country: IT (occurrence: IT)
  Receive Date: 20170904
  Receipt Date: 20210427
  Transmission Date: 20210716
  Serious: Yes (Hospitalization, Other)
  Sender: FDA-Public Use
  Company Number: IT-AUROBINDO-AUR-APL-2017-39646

PATIENT
  Age: 33 Year
  Sex: Female

DRUGS (7)
  1. QUETIAPINE FILM?COATED TABLET [Interacting]
     Active Substance: QUETIAPINE
     Indication: PRODUCT USED FOR UNKNOWN INDICATION
     Dosage: 1500 MILLIGRAM, TOTOAL
     Route: 048
     Dates: start: 20170713, end: 20170713
  2. ALCOHOL. [Interacting]
     Active Substance: ALCOHOL
     Indication: PRODUCT USED FOR UNKNOWN INDICATION
     Dosage: UNK
     Route: 065
  3. CARBOLITHIUM [Suspect]
     Active Substance: LITHIUM CARBONATE
     Indication: PRODUCT USED FOR UNKNOWN INDICATION
     Dosage: 1500 MILLIGRAM, TOTOAL
     Route: 048
     Dates: start: 20170713, end: 20170713
  4. TACHIDOL [Suspect]
     Active Substance: ACETAMINOPHEN\CODEINE PHOSPHATE
     Indication: PRODUCT USED FOR UNKNOWN INDICATION
     Dosage: UNK
     Route: 048
     Dates: start: 20170713, end: 20170713
  5. AUGMENTIN [Interacting]
     Active Substance: AMOXICILLIN\CLAVULANATE POTASSIUM
     Indication: PRODUCT USED FOR UNKNOWN INDICATION
     Dosage: UNK
     Route: 048
     Dates: start: 20170713, end: 20170713
  6. FLUOXETINE [Suspect]
     Active Substance: FLUOXETINE HYDROCHLORIDE
     Indication: PRODUCT USED FOR UNKNOWN INDICATION
     Dosage: UNK
     Route: 048
     Dates: start: 20170713, end: 20170713
  7. LORAZEPAM TABLETS [Suspect]
     Active Substance: LORAZEPAM
     Indication: PRODUCT USED FOR UNKNOWN INDICATION
     Dosage: UNK
     Route: 048
     Dates: start: 20170713, end: 20170713

REACTIONS (10)
  - Induced abortion failed [Recovering/Resolving]
  - Pyrexia [Recovering/Resolving]
  - Protein C increased [Recovering/Resolving]
  - Alcohol interaction [Recovering/Resolving]
  - Leukocytosis [Recovering/Resolving]
  - Overdose [Unknown]
  - Drug use disorder [Recovering/Resolving]
  - Pelvic pain [Recovering/Resolving]
  - Exposure during pregnancy [Unknown]
  - Drug abuse [Unknown]

NARRATIVE: CASE EVENT DATE: 2017
